FAERS Safety Report 17236940 (Version 1)
Quarter: 2020Q1

REPORT INFORMATION
  Report Type: Spontaneous
  Country: US (occurrence: US)
  Receive Date: 20200106
  Receipt Date: 20200106
  Transmission Date: 20200409
  Serious: No
  Sender: FDA-Public Use
  Company Number: NVSC2019US084593

PATIENT
  Age: 17 Year
  Sex: Male

DRUGS (1)
  1. NETSPOT [Suspect]
     Active Substance: DOTATATE GALLIUM GA-68
     Indication: PRODUCT USED FOR UNKNOWN INDICATION
     Dosage: 3.5 MCI
     Route: 065

REACTIONS (2)
  - Burning sensation [Recovered/Resolved]
  - Nausea [Unknown]
